FAERS Safety Report 21402194 (Version 2)
Quarter: 2023Q1

REPORT INFORMATION
  Report Type: Spontaneous
  Country: US (occurrence: US)
  Receive Date: 20221003
  Receipt Date: 20230109
  Transmission Date: 20230418
  Serious: Yes (Other)
  Sender: FDA-Public Use
  Company Number: US-SUN PHARMACEUTICAL INDUSTRIES LTD-2022R1-357146

PATIENT
  Age: 53 Year
  Sex: Female

DRUGS (2)
  1. DULOXETINE [Interacting]
     Active Substance: DULOXETINE
     Indication: Anxiety
     Dosage: 60 MILLIGRAM, DAILY
     Route: 065
  2. PREGABALIN [Interacting]
     Active Substance: PREGABALIN
     Indication: Anxiety
     Dosage: 75 MILLIGRAM, BID
     Route: 065

REACTIONS (2)
  - Drug interaction [Unknown]
  - Priapism [Recovered/Resolved]
